FAERS Safety Report 7986998-3 (Version None)
Quarter: 2011Q4

REPORT INFORMATION
  Report Type: 
  Country: None (occurrence: None)
  Receive Date: 20111216
  Receipt Date: 20110314
  Transmission Date: 20120403
  Serious: No
  Sender: FDA-Public Use
  Company Number: US-BRISTOL-MYERS SQUIBB COMPANY-15597800

PATIENT
  Age: 62 Year
  Sex: Female

DRUGS (5)
  1. NIFEDIPINE [Concomitant]
  2. ABILIFY [Suspect]
     Dosage: STARTED ON 1987 OR 1988
  3. ASPIRIN [Concomitant]
  4. SEROQUEL [Concomitant]
  5. HYDROCHLOROTHIAZIDE [Concomitant]

REACTIONS (1)
  - LIVER DISORDER [None]
